FAERS Safety Report 11455374 (Version 1)
Quarter: 2015Q3

REPORT INFORMATION
  Report Type: Spontaneous
  Country: CH (occurrence: FR)
  Receive Date: 20150903
  Receipt Date: 20150903
  Transmission Date: 20151125
  Serious: Yes (Disabling)
  Sender: FDA-Public Use
  Company Number: CH-LPDUSPRD-20150658

PATIENT
  Age: 64 Year
  Sex: Female

DRUGS (1)
  1. FERINJECT [Suspect]
     Active Substance: FERRIC CARBOXYMALTOSE
     Dosage: 1000 MG 1 IN 1 MONTH
     Route: 041
     Dates: start: 201404

REACTIONS (3)
  - Off label use [Unknown]
  - Myalgia [Recovered/Resolved with Sequelae]
  - Hypophosphataemia [Unknown]

NARRATIVE: CASE EVENT DATE: 201411
